FAERS Safety Report 6123378-X (Version None)
Quarter: 2009Q1

REPORT INFORMATION
  Report Type: 
  Country: None (occurrence: None)
  Receive Date: 20090318
  Receipt Date: 20090311
  Transmission Date: 20090719
  Serious: Yes (Death)
  Sender: FDA-Public Use
  Company Number: DE-ABBOTT-09P-062-0500787-00

PATIENT
  Sex: Male
  Weight: 66 kg

DRUGS (3)
  1. KALETRA [Suspect]
     Indication: HIV INFECTION
     Route: 048
     Dates: start: 20070619
  2. TRIZIVIR [Concomitant]
     Indication: HIV INFECTION
  3. TRUVADA [Concomitant]
     Indication: HIV INFECTION

REACTIONS (1)
  - CEREBROVASCULAR ACCIDENT [None]
